FAERS Safety Report 15600613 (Version 4)
Quarter: 2018Q4

REPORT INFORMATION
  Report Type: Spontaneous
  Country: FR (occurrence: FR)
  Receive Date: 20181109
  Receipt Date: 20181224
  Transmission Date: 20190205
  Serious: Yes (Hospitalization, Other)
  Sender: FDA-Public Use
  Company Number: FR-AUROBINDO-AUR-APL-2018-053679

PATIENT
  Age: 21 Year
  Sex: Female
  Weight: 107 kg

DRUGS (5)
  1. PARACETAMOL [Suspect]
     Active Substance: ACETAMINOPHEN
     Indication: PRODUCT USED FOR UNKNOWN INDICATION
     Dosage: 16 GRAM, SINGLE ; IN TOTAL
     Route: 048
  2. VALPROIC ACID. [Suspect]
     Active Substance: VALPROIC ACID
     Indication: PRODUCT USED FOR UNKNOWN INDICATION
     Dosage: 9 GRAM, SINGLE ; IN TOTAL
     Route: 048
  3. RIVAROXABAN [Suspect]
     Active Substance: RIVAROXABAN
     Indication: ANTICOAGULANT THERAPY
     Dosage: 420 MILLIGRAM, SINGLE ; IN TOTAL
     Route: 048
  4. VALPROMIDE [Suspect]
     Active Substance: VALPROMIDE
     Indication: PRODUCT USED FOR UNKNOWN INDICATION
     Dosage: 9 GRAM, SINGLE ; IN TOTAL
     Route: 065
  5. PROPRANOLOL [Suspect]
     Active Substance: PROPRANOLOL HYDROCHLORIDE
     Indication: PRODUCT USED FOR UNKNOWN INDICATION
     Dosage: 80 MILLIGRAM, SINGLE ; IN TOTAL
     Route: 048

REACTIONS (8)
  - Poisoning deliberate [Recovered/Resolved]
  - Bradycardia [Unknown]
  - Intentional overdose [Unknown]
  - Off label use [Unknown]
  - Suicide attempt [Unknown]
  - Overdose [Unknown]
  - Product use issue [Unknown]
  - Toxicity to various agents [Recovered/Resolved]
